FAERS Safety Report 13081829 (Version 2)
Quarter: 2017Q1

REPORT INFORMATION
  Report Type: Spontaneous
  Country: US (occurrence: US)
  Receive Date: 20170103
  Receipt Date: 20170112
  Transmission Date: 20170428
  Serious: Yes (Death, Hospitalization, Other)
  Sender: FDA-Public Use
  Company Number: US-PFIZER INC-2016604342

PATIENT
  Age: 68 Year
  Sex: Female
  Weight: 93.89 kg

DRUGS (1)
  1. SUTENT [Suspect]
     Active Substance: SUNITINIB MALATE
     Indication: RENAL CANCER METASTATIC
     Dosage: 25 MG, 2X/DAY
     Route: 048
     Dates: start: 201612, end: 201612

REACTIONS (3)
  - Gastrointestinal necrosis [Unknown]
  - Intestinal obstruction [Fatal]
  - Rectal haemorrhage [Unknown]

NARRATIVE: CASE EVENT DATE: 201612
